FAERS Safety Report 9969730 (Version 1)
Quarter: 2014Q1

REPORT INFORMATION
  Report Type: Spontaneous
  Country: US (occurrence: None)
  Receive Date: 20140304
  Receipt Date: 20140304
  Transmission Date: 20141002
  Serious: No
  Sender: FDA-Public Use
  Company Number: None

PATIENT
  Age: 40 Year
  Sex: Female
  Weight: 56.7 kg

DRUGS (1)
  1. LEVOFLOXACIN [Suspect]
     Indication: PHARYNGITIS
     Dosage: TAKEN BY MOUTH
     Dates: start: 20140224, end: 20140224

REACTIONS (4)
  - Tremor [None]
  - Dizziness [None]
  - Hyperhidrosis [None]
  - Insomnia [None]
